FAERS Safety Report 10842292 (Version 4)
Quarter: 2015Q2

REPORT INFORMATION
  Report Type: Spontaneous
  Country: US (occurrence: US)
  Receive Date: 20150220
  Receipt Date: 20150619
  Transmission Date: 20150821
  Serious: Yes (Other)
  Sender: FDA-Public Use
  Company Number: US-PFIZER INC-2015058079

PATIENT
  Age: 26 Year
  Sex: Female
  Weight: 45 kg

DRUGS (3)
  1. XANAX [Suspect]
     Active Substance: ALPRAZOLAM
     Indication: ANXIETY
     Dosage: UNK
     Dates: end: 201503
  2. XANAX [Suspect]
     Active Substance: ALPRAZOLAM
     Indication: PAIN
  3. HYDROCODONE [Concomitant]
     Active Substance: HYDROCODONE
     Dosage: UNK

REACTIONS (7)
  - Nausea [Unknown]
  - Oedema [Not Recovered/Not Resolved]
  - Vomiting [Unknown]
  - Drug withdrawal syndrome [Not Recovered/Not Resolved]
  - Angioedema [Not Recovered/Not Resolved]
  - Diarrhoea [Unknown]
  - Bedridden [Unknown]

NARRATIVE: CASE EVENT DATE: 2015
